FAERS Safety Report 9818235 (Version 1)
Quarter: 2014Q1

REPORT INFORMATION
  Report Type: Spontaneous
  Country: US (occurrence: US)
  Receive Date: 20140115
  Receipt Date: 20140115
  Transmission Date: 20141002
  Serious: Yes (Death)
  Sender: FDA-Public Use
  Company Number: 2014SP000054

PATIENT
  Age: 31 Year
  Sex: Male

DRUGS (6)
  1. LUNESTA [Suspect]
     Route: 048
  2. HEROIN [Suspect]
  3. HYDROCODONE [Suspect]
  4. AMPHETAMINE [Suspect]
  5. CITALOPRAM [Suspect]
  6. LAMOTRIGINE [Suspect]

REACTIONS (1)
  - Completed suicide [Fatal]
